FAERS Safety Report 7704452-0 (Version None)
Quarter: 2011Q3

REPORT INFORMATION
  Report Type: 
  Country: None (occurrence: None)
  Receive Date: 20110823
  Receipt Date: 20110810
  Transmission Date: 20111222
  Serious: Yes (Hospitalization)
  Sender: FDA-Public Use
  Company Number: US-CELGENEUS-163-21880-11020723

PATIENT
  Sex: Male

DRUGS (11)
  1. REVLIMID [Suspect]
     Indication: MULTIPLE MYELOMA
     Dosage: 10 MILLIGRAM
     Route: 048
     Dates: start: 20101202, end: 20110510
  2. CISPLATIN [Concomitant]
     Route: 065
     Dates: start: 20110501
  3. CYCLOPHOSPHAMIDE [Concomitant]
     Route: 065
     Dates: start: 20110501
  4. THALOMID [Suspect]
     Indication: MULTIPLE MYELOMA
     Dosage: 400 MILLIGRAM
     Route: 048
     Dates: start: 20110501
  5. DEXAMETHASONE [Concomitant]
     Route: 065
     Dates: start: 20110701
  6. VINCRISTINE [Concomitant]
     Route: 065
     Dates: start: 20110701
  7. DOXORUBICIN HCL [Concomitant]
     Route: 065
     Dates: start: 20110501
  8. ETOPOSIDE [Concomitant]
     Route: 065
  9. DEXAMETHASONE [Concomitant]
     Route: 065
     Dates: start: 20110501
  10. CYCLOPHOSPHAMIDE [Concomitant]
     Route: 065
     Dates: start: 20110701
  11. DOXORUBICIN HCL [Concomitant]
     Route: 065
     Dates: start: 20110701

REACTIONS (3)
  - LABORATORY TEST ABNORMAL [None]
  - MULTIPLE MYELOMA [None]
  - LEUKAEMIA PLASMACYTIC [None]
